FAERS Safety Report 10103342 (Version 2)
Quarter: 2014Q2

REPORT INFORMATION
  Report Type: Other
  Country: US (occurrence: US)
  Receive Date: 20140424
  Receipt Date: 20140625
  Transmission Date: 20141212
  Serious: Yes (Hospitalization, Other)
  Sender: FDA-Public Use
  Company Number: US-GSKPPD-2014GSK000208

PATIENT
  Age: 58 Year
  Sex: Male

DRUGS (5)
  1. AVANDIA [Suspect]
     Indication: DIABETES MELLITUS
     Route: 048
     Dates: start: 20060808
  2. AVANDAMET [Suspect]
     Indication: DIABETES MELLITUS
     Dosage: 8 MG / 2000 MG
     Dates: start: 20061214, end: 20071214
  3. LISINOPRIL [Concomitant]
  4. COREG [Concomitant]
     Route: 048
  5. ASPIRIN [Concomitant]

REACTIONS (3)
  - Cardiomyopathy [Recovered/Resolved]
  - Cerebrovascular accident [Recovered/Resolved]
  - Renal failure [Recovered/Resolved]
